FAERS Safety Report 21931624 (Version 2)
Quarter: 2023Q1

REPORT INFORMATION
  Report Type: Spontaneous
  Country: FR (occurrence: FR)
  Receive Date: 20230131
  Receipt Date: 20230307
  Transmission Date: 20230417
  Serious: Yes (Other)
  Sender: FDA-Public Use
  Company Number: FR-VERTEX PHARMACEUTICALS-2023-001531

PATIENT
  Age: 1 Year
  Sex: Female

DRUGS (1)
  1. ORKAMBI [Suspect]
     Active Substance: IVACAFTOR\LUMACAFTOR
     Indication: Cystic fibrosis
     Dosage: 100 MG LLUMACAFTOR/125 MG IVACAFTOR, QD
     Route: 048
     Dates: start: 20220308

REACTIONS (6)
  - Atelectasis [Not Recovered/Not Resolved]
  - Failure to thrive [Not Recovered/Not Resolved]
  - Pseudomonas infection [Recovered/Resolved]
  - Oral disorder [Not Recovered/Not Resolved]
  - Food refusal [Not Recovered/Not Resolved]
  - Stenotrophomonas infection [Unknown]

NARRATIVE: CASE EVENT DATE: 20220407
